FAERS Safety Report 9704997 (Version 2)
Quarter: 2013Q4

REPORT INFORMATION
  Report Type: Spontaneous
  Country: US (occurrence: US)
  Receive Date: 20131122
  Receipt Date: 20131201
  Transmission Date: 20140711
  Serious: No
  Sender: FDA-Public Use
  Company Number: US-ABBVIE-13P-163-1138539-00

PATIENT
  Age: 65 Year
  Sex: Male
  Weight: 97.61 kg

DRUGS (6)
  1. ANDROGEL [Suspect]
     Indication: BLOOD TESTOSTERONE DECREASED
     Dosage: 3 PUMPS DAILY
     Route: 061
     Dates: start: 2011
  2. ANDROGEL [Suspect]
     Dosage: 4-9 PUMPS DAILY
  3. ZOLOFT [Concomitant]
     Indication: DEPRESSION
  4. NEXIUM [Concomitant]
     Indication: GASTROOESOPHAGEAL REFLUX DISEASE
  5. ALLOPURINOL [Concomitant]
     Indication: GOUT
  6. LOPRESSOR [Concomitant]
     Indication: HYPERTENSION

REACTIONS (3)
  - Libido decreased [Not Recovered/Not Resolved]
  - Intentional drug misuse [Unknown]
  - Drug ineffective [Unknown]
